FAERS Safety Report 6370596-1 (Version None)
Quarter: 2009Q3

REPORT INFORMATION
  Report Type: 
  Country: None (occurrence: None)
  Receive Date: 20090923
  Receipt Date: 20090923
  Transmission Date: 20100115
  Serious: Yes (Death, Hospitalization)
  Sender: FDA-Public Use
  Company Number: D0062248A

PATIENT
  Age: 88 Year
  Sex: Female

DRUGS (1)
  1. ARIXTRA [Suspect]
     Indication: PROPHYLAXIS
     Route: 065
     Dates: start: 20081201

REACTIONS (1)
  - INTRA-ABDOMINAL HAEMORRHAGE [None]
